FAERS Safety Report 14207867 (Version 1)
Quarter: 2017Q4

REPORT INFORMATION
  Report Type: Report from Study
  Country: None (occurrence: US)
  Receive Date: 20171121
  Receipt Date: 20171121
  Transmission Date: 20180321
  Serious: Yes (Hospitalization, Other)
  Sender: FDA-Public Use
  Company Number: US-ABBVIE-17K-163-2151531-00

PATIENT
  Age: 23 Year
  Sex: Male
  Weight: 86.26 kg

DRUGS (3)
  1. LIALDA [Concomitant]
     Active Substance: MESALAMINE
     Indication: PRODUCT USED FOR UNKNOWN INDICATION
  2. HUMIRA [Suspect]
     Active Substance: ADALIMUMAB
     Indication: COLITIS ULCERATIVE
     Route: 058
     Dates: start: 20170524, end: 20171009
  3. SINGULAIR [Concomitant]
     Active Substance: MONTELUKAST SODIUM
     Indication: SEASONAL ALLERGY

REACTIONS (14)
  - Sialoadenitis [Recovered/Resolved]
  - Fatigue [Unknown]
  - Pharyngeal oedema [Not Recovered/Not Resolved]
  - Localised infection [Unknown]
  - Salivary gland enlargement [Recovered/Resolved]
  - Respiratory tract congestion [Unknown]
  - Dyspnoea [Unknown]
  - Sialoadenitis [Recovered/Resolved]
  - Swelling face [Recovered/Resolved]
  - Pharyngeal oedema [Recovered/Resolved]
  - Muscular weakness [Not Recovered/Not Resolved]
  - Myopathy [Not Recovered/Not Resolved]
  - Asthenia [Unknown]
  - Ear pain [Not Recovered/Not Resolved]

NARRATIVE: CASE EVENT DATE: 2017
